FAERS Safety Report 16103741 (Version 1)
Quarter: 2019Q1

REPORT INFORMATION
  Report Type: Spontaneous
  Country: GR (occurrence: GR)
  Receive Date: 20190322
  Receipt Date: 20190322
  Transmission Date: 20190418
  Serious: Yes (Other)
  Sender: FDA-Public Use
  Company Number: GR-TAKEDA-2019TUS015226

PATIENT
  Age: 27 Year
  Sex: Female

DRUGS (3)
  1. FILICINE [Concomitant]
     Dosage: UNK
  2. ENTYVIO [Suspect]
     Active Substance: VEDOLIZUMAB
     Indication: COLITIS ULCERATIVE
     Dosage: UNK
     Route: 042
     Dates: start: 20151228, end: 20190222
  3. AUGMENTIN [Concomitant]
     Active Substance: AMOXICILLIN\CLAVULANATE POTASSIUM
     Indication: WISDOM TEETH REMOVAL
     Dosage: UNK, BID
     Dates: start: 20190118, end: 20190128

REACTIONS (2)
  - Pregnancy [Unknown]
  - Abortion missed [Recovered/Resolved]

NARRATIVE: CASE EVENT DATE: 20190226
